FAERS Safety Report 9637511 (Version 3)
Quarter: 2013Q4

REPORT INFORMATION
  Report Type: Spontaneous
  Country: CN (occurrence: CN)
  Receive Date: 20131022
  Receipt Date: 20131230
  Transmission Date: 20140711
  Serious: Yes (Other)
  Sender: FDA-Public Use
  Company Number: CN-SA-2013SA103346

PATIENT
  Sex: Male

DRUGS (4)
  1. PLAVIX [Suspect]
     Indication: PROPHYLAXIS
     Route: 048
     Dates: start: 201206
  2. LIPITOR [Concomitant]
     Indication: PROPHYLAXIS
     Route: 048
     Dates: start: 201206
  3. ASPIRIN [Concomitant]
     Indication: PROPHYLAXIS
     Route: 048
     Dates: start: 201206
  4. BETALOC [Concomitant]
     Indication: PROPHYLAXIS
     Route: 048
     Dates: start: 201206

REACTIONS (2)
  - Vascular occlusion [Not Recovered/Not Resolved]
  - Product counterfeit [Unknown]
